FAERS Safety Report 5140611-1 (Version None)
Quarter: 2006Q4

REPORT INFORMATION
  Report Type: 
  Country: None (occurrence: None)
  Receive Date: 20061031
  Receipt Date: 20060829
  Transmission Date: 20070319
  Serious: Yes (Other)
  Sender: FDA-Public Use
  Company Number: US-NOVOPROD-256492

PATIENT
  Age: 47 Year
  Sex: Female

DRUGS (8)
  1. ACTIVELLA [Suspect]
     Indication: HORMONE THERAPY
     Dates: start: 20030301, end: 20040601
  2. OGEN [Suspect]
     Indication: HORMONE THERAPY
     Dates: start: 19970501, end: 19980301
  3. PROVERA [Suspect]
     Indication: HORMONE THERAPY
     Dates: start: 19970501, end: 19990201
  4. PREMARIN [Suspect]
     Indication: HORMONE THERAPY
     Dates: start: 19980301, end: 19990201
  5. PROMETRIUM [Suspect]
     Indication: HORMONE THERAPY
     Dates: start: 19990301, end: 20000701
  6. ESTRATAB [Suspect]
     Indication: HORMONE THERAPY
     Dates: start: 19990401, end: 20000401
  7. ORTHO-PREFEST [Suspect]
     Indication: HORMONE THERAPY
     Dates: start: 20000901, end: 20020301
  8. ESTRATEST [Suspect]
     Indication: HORMONE THERAPY
     Dates: start: 20000401, end: 20000701

REACTIONS (1)
  - BREAST CANCER IN SITU [None]
